FAERS Safety Report 4596439-4 (Version None)
Quarter: 2005Q1

REPORT INFORMATION
  Report Type: 
  Country: None (occurrence: None)
  Receive Date: 20050302
  Receipt Date: 19991116
  Transmission Date: 20050727
  Serious: Yes (Disabling)
  Sender: FDA-Public Use
  Company Number: 99J--10417

PATIENT
  Age: 71 Year
  Sex: Female
  Weight: 46 kg

DRUGS (7)
  1. MAPROTILINE HYDROCHLORIDE [Suspect]
     Indication: DEPRESSION
     Route: 048
     Dates: start: 19960101
  2. MAPROTILINE HYDROCHLORIDE [Suspect]
     Route: 048
     Dates: start: 19980101, end: 19981102
  3. ALPRAZOLAM [Suspect]
     Dosage: UNK, UNK
     Route: 048
     Dates: start: 19960101
  4. CLOTIAZEPAM [Suspect]
     Indication: DEPRESSION
     Dosage: UNK DF, UNK
     Route: 048
     Dates: start: 19960101
  5. SERMION [Concomitant]
     Route: 048
     Dates: start: 19980101, end: 19981102
  6. ROHYPNOL [Concomitant]
     Route: 048
     Dates: start: 19980101, end: 19981102
  7. TECIPUL [Concomitant]
     Route: 065
     Dates: start: 19980101, end: 19981102

REACTIONS (9)
  - ANGLE CLOSURE GLAUCOMA [None]
  - BLINDNESS [None]
  - CONDITION AGGRAVATED [None]
  - CONJUNCTIVAL HYPERAEMIA [None]
  - CORNEAL OEDEMA [None]
  - EYE PAIN [None]
  - FLAT ANTERIOR CHAMBER OF EYE [None]
  - IRIS ATROPHY [None]
  - MYDRIASIS [None]
